FAERS Safety Report 7944863-1 (Version None)
Quarter: 2011Q4

REPORT INFORMATION
  Report Type: 
  Country: None (occurrence: None)
  Receive Date: 20111129
  Receipt Date: 20110411
  Transmission Date: 20120403
  Serious: No
  Sender: FDA-Public Use
  Company Number: US-MYLANLABS-2011S1007676

PATIENT
  Age: 73 Year
  Sex: Female

DRUGS (1)
  1. AMLODIPINE BESYLATE [Suspect]
     Indication: BLOOD PRESSURE INCREASED
     Route: 048
     Dates: start: 20100101, end: 20110411

REACTIONS (2)
  - GASTROOESOPHAGEAL REFLUX DISEASE [None]
  - PSYCHOMOTOR HYPERACTIVITY [None]
